FAERS Safety Report 15795176 (Version 1)
Quarter: 2019Q1

REPORT INFORMATION
  Report Type: Spontaneous
  Country: US (occurrence: US)
  Receive Date: 20190107
  Receipt Date: 20190107
  Transmission Date: 20190417
  Serious: Yes (Death)
  Sender: FDA-Public Use
  Company Number: None

PATIENT
  Age: 57 Year
  Sex: Female

DRUGS (10)
  1. CALCIUM 600, CITALOPRAM [Concomitant]
  2. SIMVASTATIN, TOPIRAMATE [Concomitant]
  3. VITAMIN B12, XGEVA [Concomitant]
  4. CAPECITABINE. [Suspect]
     Active Substance: CAPECITABINE
     Indication: BREAST CANCER FEMALE
     Dosage: ?          OTHER FREQUENCY:BID FOR 14 DAYS;?
     Route: 048
     Dates: start: 20171111, end: 20181213
  5. LANTUS, LASIX [Concomitant]
  6. MG SO4/D5W, OXYCODONE [Concomitant]
  7. PANTOPRAZOLE, POT CHLORIDE [Concomitant]
  8. ELIQUIS, GABAPENTIN [Concomitant]
  9. GLIPIZIDE ER, HYDROCO/APAP [Concomitant]
  10. TRAZODONE, TRULICITY [Concomitant]

REACTIONS (1)
  - Death [None]

NARRATIVE: CASE EVENT DATE: 20181213
